FAERS Safety Report 9268949 (Version 3)
Quarter: 2013Q2

REPORT INFORMATION
  Report Type: Report from Study
  Country: JP (occurrence: JP)
  Receive Date: 20130503
  Receipt Date: 20130626
  Transmission Date: 20140414
  Serious: Yes (Hospitalization)
  Sender: FDA-Public Use
  Company Number: JP-ROCHE-1218736

PATIENT
  Age: 67 Year
  Sex: Male

DRUGS (5)
  1. METHOXY POLYETHYLENE GLYCOL-EPOETIN BETA [Suspect]
     Indication: NEPHROGENIC ANAEMIA
     Route: 058
     Dates: start: 20121030, end: 20130122
  2. AMLODIPINE [Concomitant]
     Route: 048
     Dates: start: 20120514
  3. BAYASPIRIN [Concomitant]
     Indication: GLOMERULONEPHRITIS CHRONIC
     Route: 048
     Dates: start: 20120514
  4. ATELEC [Concomitant]
     Route: 048
     Dates: start: 20120611
  5. ARGAMATE [Concomitant]
     Indication: GLOMERULONEPHRITIS CHRONIC
     Route: 048
     Dates: start: 20120611

REACTIONS (2)
  - Cerebral infarction [Not Recovered/Not Resolved]
  - Arteriosclerosis [Not Recovered/Not Resolved]
